FAERS Safety Report 10145695 (Version 1)
Quarter: 2014Q2

REPORT INFORMATION
  Report Type: Spontaneous
  Country: US (occurrence: US)
  Receive Date: 20140501
  Receipt Date: 20140501
  Transmission Date: 20141212
  Serious: No
  Sender: FDA-Public Use
  Company Number: US-ABBVIE-13P-163-1176993-00

PATIENT
  Age: 87 Year
  Sex: Female

DRUGS (2)
  1. CREON [Suspect]
     Indication: IRRITABLE BOWEL SYNDROME
     Dates: start: 201311, end: 201311
  2. CREON [Suspect]
     Indication: GASTRIC DISORDER

REACTIONS (2)
  - Off label use [Recovered/Resolved]
  - Flatulence [Recovered/Resolved]
